FAERS Safety Report 10534696 (Version 2)
Quarter: 2014Q4

REPORT INFORMATION
  Report Type: Spontaneous
  Country: US (occurrence: US)
  Receive Date: 20141022
  Receipt Date: 20141022
  Transmission Date: 20150529
  Serious: Yes (Hospitalization, Other)
  Sender: FDA-Public Use
  Company Number: US-GLAXOSMITHKLINE-A0733470A

PATIENT
  Age: 47 Year
  Sex: Female
  Weight: 137 kg

DRUGS (2)
  1. AVANDIA [Suspect]
     Active Substance: ROSIGLITAZONE MALEATE
     Indication: TYPE 2 DIABETES MELLITUS
     Dosage: 4 MG, UNK
     Route: 048
     Dates: start: 2003, end: 200608
  2. AVANDIA [Suspect]
     Active Substance: ROSIGLITAZONE MALEATE
     Dosage: 2 MG, QD
     Route: 048

REACTIONS (4)
  - Fatigue [Unknown]
  - Myocardial infarction [Not Recovered/Not Resolved]
  - Asthenia [Unknown]
  - Chest pain [Unknown]

NARRATIVE: CASE EVENT DATE: 20060807
